FAERS Safety Report 9660321 (Version 1)
Quarter: 2013Q4

REPORT INFORMATION
  Report Type: Spontaneous
  Country: US (occurrence: US)
  Receive Date: 20131031
  Receipt Date: 20131031
  Transmission Date: 20140711
  Serious: Yes (Other)
  Sender: FDA-Public Use
  Company Number: US-NAPPMUNDI-USA-2011-0072730

PATIENT
  Sex: Male

DRUGS (2)
  1. OXYCONTIN TABLETS [Suspect]
     Indication: SUBSTANCE ABUSE
  2. ALCOHOL [Suspect]
     Indication: SUBSTANCE ABUSE

REACTIONS (1)
  - Substance abuse [Unknown]
